FAERS Safety Report 16392682 (Version 2)
Quarter: 2019Q2

REPORT INFORMATION
  Report Type: Spontaneous
  Country: US (occurrence: US)
  Receive Date: 20190605
  Receipt Date: 20190628
  Transmission Date: 20190711
  Serious: No
  Sender: FDA-Public Use
  Company Number: US-GLAXOSMITHKLINE-US2019098799

PATIENT
  Age: 70 Year
  Sex: Female

DRUGS (1)
  1. SENSODYNE PRONAMEL [Suspect]
     Active Substance: POTASSIUM NITRATE\SODIUM FLUORIDE
     Indication: HYPERAESTHESIA TEETH
     Dosage: UNK

REACTIONS (1)
  - Lip pain [Unknown]
